FAERS Safety Report 24268586 (Version 1)
Quarter: 2024Q3

REPORT INFORMATION
  Report Type: Spontaneous
  Country: US (occurrence: US)
  Receive Date: 20240830
  Receipt Date: 20240830
  Transmission Date: 20241016
  Serious: No
  Sender: MAYNE
  Company Number: US-MAYNE PHARMA-2024MYN000076

PATIENT

DRUGS (2)
  1. ANNOVERA [Suspect]
     Active Substance: ETHINYL ESTRADIOL\SEGESTERONE ACETATE
     Indication: Endometriosis
     Dosage: 0.15 MG-0.013 MG
     Route: 067
     Dates: start: 20231221
  2. ANNOVERA [Suspect]
     Active Substance: ETHINYL ESTRADIOL\SEGESTERONE ACETATE
     Indication: Premenstrual dysphoric disorder

REACTIONS (4)
  - Heavy menstrual bleeding [Unknown]
  - Headache [Unknown]
  - Dysmenorrhoea [Unknown]
  - Emotional disorder [Unknown]

NARRATIVE: CASE EVENT DATE: 20231221
